FAERS Safety Report 4792928-8 (Version None)
Quarter: 2005Q4

REPORT INFORMATION
  Report Type: 
  Country: None (occurrence: None)
  Receive Date: 20051010
  Receipt Date: 20051003
  Transmission Date: 20060501
  Serious: Yes (Hospitalization, Other)
  Sender: FDA-Public Use
  Company Number: 2005UW14824

PATIENT
  Age: 28 Year
  Sex: Female

DRUGS (2)
  1. SEROQUEL [Suspect]
     Route: 048
  2. LAMICTAL [Concomitant]
     Indication: BIPOLAR DISORDER

REACTIONS (2)
  - LOSS OF CONSCIOUSNESS [None]
  - RETROGRADE AMNESIA [None]
